FAERS Safety Report 8899036 (Version 1)
Quarter: 2012Q4

REPORT INFORMATION
  Report Type: 
  Country: US (occurrence: US)
  Receive Date: 20121108
  Receipt Date: 20121108
  Transmission Date: 20130627
  Serious: No
  Sender: FDA-Public Use
  Company Number: US-AMGEN-USASP2012027662

PATIENT
  Age: 48 Year
  Sex: Female
  Weight: 79.37 kg

DRUGS (5)
  1. ENBREL [Suspect]
     Indication: RHEUMATOID ARTHRITIS
     Dosage: 50 mg, qwk
  2. METHOTREXATE [Concomitant]
     Dosage: 2.5 mg, UNK
  3. FOLIC ACID [Concomitant]
  4. LEVOTHYROXIN [Concomitant]
     Dosage: 88 mug, UNK
  5. TRIAMTERENE/HCTZ [Concomitant]

REACTIONS (2)
  - Rheumatoid arthritis [Unknown]
  - Stress [Unknown]
